FAERS Safety Report 21184047 (Version 3)
Quarter: 2022Q4

REPORT INFORMATION
  Report Type: Spontaneous
  Country: GB (occurrence: GB)
  Receive Date: 20220808
  Receipt Date: 20221215
  Transmission Date: 20230113
  Serious: Yes (Hospitalization, Other)
  Sender: FDA-Public Use
  Company Number: GB-MYLANLABS-2022M1083385

PATIENT
  Age: 24 Year
  Sex: Male

DRUGS (2)
  1. CLOZARIL [Suspect]
     Active Substance: CLOZAPINE
     Indication: Schizophrenia
     Dosage: UNK
     Route: 048
  2. CLOZARIL [Suspect]
     Active Substance: CLOZAPINE
     Dosage: UNK (START DATE: 01-AUG-2022)
     Route: 048

REACTIONS (6)
  - Rehabilitation therapy [Unknown]
  - Neuroleptic malignant syndrome [Unknown]
  - Respiratory rate increased [Unknown]
  - Heart rate increased [Unknown]
  - Body temperature increased [Unknown]
  - Infection [Unknown]

NARRATIVE: CASE EVENT DATE: 20220722
